FAERS Safety Report 6495658-X (Version None)
Quarter: 2009Q4

REPORT INFORMATION
  Report Type: 
  Country: None (occurrence: None)
  Receive Date: 20091214
  Receipt Date: 20090729
  Transmission Date: 20100525
  Serious: No
  Sender: FDA-Public Use
  Company Number: US-BRISTOL-MYERS SQUIBB COMPANY-14721013

PATIENT
  Age: 20 Year
  Sex: Female
  Weight: 68 kg

DRUGS (4)
  1. ABILIFY [Suspect]
     Indication: ANXIETY
     Dates: start: 20090719
  2. CELEXA [Suspect]
     Indication: ANXIETY
     Dates: start: 20090719
  3. RITALIN [Concomitant]
  4. CONCERTA [Concomitant]

REACTIONS (1)
  - AKATHISIA [None]
